FAERS Safety Report 15454009 (Version 3)
Quarter: 2019Q2

REPORT INFORMATION
  Report Type: Spontaneous
  Country: JP (occurrence: JP)
  Receive Date: 20181002
  Receipt Date: 20190624
  Transmission Date: 20190711
  Serious: Yes (Death)
  Sender: FDA-Public Use
  Company Number: JP-BEH-2018095327

PATIENT
  Age: 78 Year
  Sex: Male

DRUGS (4)
  1. KAYTWO [Concomitant]
     Active Substance: MENATETRENONE
     Indication: HAEMATOMA EVACUATION
     Route: 065
  2. KAYTWO [Concomitant]
     Active Substance: MENATETRENONE
     Indication: CRANIOTOMY
  3. KCENTRA [Suspect]
     Active Substance: COAGULATION FACTOR IX HUMAN\COAGULATION FACTOR VII HUMAN\COAGULATION FACTOR X HUMAN\PROTEIN C\PROTEIN S HUMAN\PROTHROMBIN
     Indication: HAEMATOMA EVACUATION
     Route: 065
  4. KCENTRA [Suspect]
     Active Substance: COAGULATION FACTOR IX HUMAN\COAGULATION FACTOR VII HUMAN\COAGULATION FACTOR X HUMAN\PROTEIN C\PROTEIN S HUMAN\PROTHROMBIN
     Indication: CRANIOTOMY

REACTIONS (1)
  - Cerebral disorder [Fatal]
